FAERS Safety Report 8853767 (Version 2)
Quarter: 2012Q4

REPORT INFORMATION
  Report Type: 
  Country: US (occurrence: US)
  Receive Date: 20121023
  Receipt Date: 20121206
  Transmission Date: 20130627
  Serious: Yes (Other)
  Sender: FDA-Public Use
  Company Number: US-009507513-1210USA008025

PATIENT
  Sex: Female

DRUGS (1)
  1. TEMODAR [Suspect]
     Indication: GLIOBLASTOMA
     Dosage: UNK
     Dates: start: 2012, end: 2012

REACTIONS (2)
  - Metastases to spine [Not Recovered/Not Resolved]
  - Pancytopenia [Recovering/Resolving]
